FAERS Safety Report 5618451-6 (Version None)
Quarter: 2008Q1

REPORT INFORMATION
  Report Type: 
  Country: None (occurrence: None)
  Receive Date: 20080204
  Receipt Date: 20080122
  Transmission Date: 20080703
  Serious: Yes (Other)
  Sender: FDA-Public Use
  Company Number: 2008SP002140

PATIENT
  Age: 88 Year
  Sex: Male

DRUGS (2)
  1. CLARITIN-D 24 HOUR [Suspect]
     Indication: COUGH
     Dosage: PO
     Route: 048
     Dates: start: 20080110, end: 20080111
  2. CLARITIN-D 24 HOUR [Suspect]
     Indication: PULMONARY CONGESTION
     Dosage: PO
     Route: 048
     Dates: start: 20080110, end: 20080111

REACTIONS (2)
  - DYSURIA [None]
  - MICTURITION URGENCY [None]
